FAERS Safety Report 6423497-4 (Version None)
Quarter: 2009Q4

REPORT INFORMATION
  Report Type: 
  Country: None (occurrence: None)
  Receive Date: 20091102
  Receipt Date: 20091019
  Transmission Date: 20100525
  Serious: Yes (Hospitalization)
  Sender: FDA-Public Use
  Company Number: FR-JNJFOC-20091100128

PATIENT
  Sex: Male

DRUGS (3)
  1. TOPALGIC [Suspect]
     Indication: PAIN
     Route: 048
  2. CELEBREX [Suspect]
     Indication: PAIN
     Route: 048
  3. AMOXICILLIN [Concomitant]
     Route: 065

REACTIONS (2)
  - DEVICE RELATED INFECTION [None]
  - MYOCARDITIS [None]
